FAERS Safety Report 9868219 (Version 3)
Quarter: 2014Q1

REPORT INFORMATION
  Report Type: Spontaneous
  Country: US (occurrence: US)
  Receive Date: 20140204
  Receipt Date: 20140211
  Transmission Date: 20141002
  Serious: Yes (Hospitalization, Other)
  Sender: FDA-Public Use
  Company Number: US-GILEAD-2014-0093356

PATIENT
  Sex: Male

DRUGS (5)
  1. LETAIRIS [Suspect]
     Indication: PULMONARY HYPERTENSION
     Dosage: 5 MG, UNK
     Route: 065
  2. LETAIRIS [Suspect]
     Indication: CHRONIC OBSTRUCTIVE PULMONARY DISEASE
  3. LETAIRIS [Suspect]
     Indication: INTERSTITIAL LUNG DISEASE
  4. LASIX                              /00032601/ [Concomitant]
  5. SPIRONOLACTONE [Concomitant]

REACTIONS (3)
  - Chronic obstructive pulmonary disease [Unknown]
  - Cardiac failure congestive [Unknown]
  - Pneumonia [Unknown]
